FAERS Safety Report 8238861-0 (Version None)
Quarter: 2012Q1

REPORT INFORMATION
  Report Type: 
  Country: None (occurrence: None)
  Receive Date: 20120327
  Receipt Date: 20120319
  Transmission Date: 20120608
  Serious: Yes (Other)
  Sender: FDA-Public Use
  Company Number: DE-ASTRAZENECA-2012SE02068

PATIENT
  Age: 21 Year
  Sex: Male
  Weight: 85 kg

DRUGS (4)
  1. SEROQUEL XR [Suspect]
     Route: 048
     Dates: start: 20120101
  2. SEROQUEL XR [Suspect]
     Indication: DEREALISATION
     Route: 048
     Dates: start: 20090801, end: 20120101
  3. SEROQUEL XR [Suspect]
     Indication: MANIA
     Route: 048
     Dates: start: 20090801, end: 20120101
  4. SEROQUEL XR [Suspect]
     Route: 048
     Dates: start: 20120101

REACTIONS (7)
  - TACHYCARDIA [None]
  - PSYCHOTIC DISORDER [None]
  - LEUKOPENIA [None]
  - PALPITATIONS [None]
  - NEUTROPENIA [None]
  - PANIC ATTACK [None]
  - DIZZINESS [None]
